FAERS Safety Report 5371276-1 (Version None)
Quarter: 2007Q2

REPORT INFORMATION
  Report Type: 
  Country: None (occurrence: None)
  Receive Date: 20070615
  Receipt Date: 20060710
  Transmission Date: 20071010
  Serious: Yes (Other)
  Sender: FDA-Public Use
  Company Number: 200615709US

PATIENT
  Age: 81 Year
  Sex: Male
  Weight: 88.63 kg

DRUGS (5)
  1. LANTUS [Suspect]
     Indication: DIABETES MELLITUS NON-INSULIN-DEPENDENT
     Dosage: 25 U QD;
  2. GLUCOSE [Suspect]
     Indication: HYPOGLYCAEMIA
     Dates: start: 20060704, end: 20060704
  3. METOPROLOL SUCCINATE (TOPROL) [Concomitant]
  4. LOSARTAN POTTASIUM (COZAAR) [Suspect]
  5. NOVOLOG [Concomitant]

REACTIONS (3)
  - HYPOGLYCAEMIC COMA [None]
  - INFUSION SITE SWELLING [None]
  - LOSS OF CONSCIOUSNESS [None]
